FAERS Safety Report 4699226-1 (Version None)
Quarter: 2005Q2

REPORT INFORMATION
  Report Type: 
  Country: None (occurrence: None)
  Receive Date: 20050623
  Receipt Date: 20050623
  Transmission Date: 20051028
  Serious: Yes (Disabling)
  Sender: FDA-Public Use
  Company Number: None

PATIENT
  Age: 10 Year
  Sex: Male
  Weight: 34 kg

DRUGS (1)
  1. RISPERDAL [Suspect]
     Indication: OBSESSIVE-COMPULSIVE DISORDER
     Dosage: 0.125 MG PO Q AM; 0.5 MG PO Q HS
     Route: 048
     Dates: start: 20030701, end: 20050501

REACTIONS (1)
  - ENCOPRESIS [None]
